FAERS Safety Report 8231401-1 (Version None)
Quarter: 2012Q1

REPORT INFORMATION
  Report Type: 
  Country: None (occurrence: None)
  Receive Date: 20120323
  Receipt Date: 20120319
  Transmission Date: 20120608
  Serious: Yes (Other)
  Sender: FDA-Public Use
  Company Number: US-TEVA-316385USA

PATIENT
  Sex: Male

DRUGS (1)
  1. COPAXONE [Suspect]
     Indication: MULTIPLE SCLEROSIS
     Dosage: 20 MILLIGRAM;
     Route: 058
     Dates: start: 20101101

REACTIONS (5)
  - AGGRESSION [None]
  - MOOD SWINGS [None]
  - ANGER [None]
  - PHYSICAL ASSAULT [None]
  - DEPRESSED MOOD [None]
